FAERS Safety Report 9109177 (Version 2)
Quarter: 2015Q2

REPORT INFORMATION
  Report Type: Spontaneous
  Country: US (occurrence: US)
  Receive Date: 20130222
  Receipt Date: 20150424
  Transmission Date: 20150821
  Serious: No
  Sender: FDA-Public Use
  Company Number: US-ASTRAZENECA-2013SE05081

PATIENT
  Age: 44 Year
  Sex: Female
  Weight: 114.3 kg

DRUGS (7)
  1. SYMBICORT [Suspect]
     Active Substance: BUDESONIDE\FORMOTEROL FUMARATE DIHYDRATE
     Indication: LUNG DISORDER
     Dosage: UNKNOWN
     Route: 055
  2. SYMBICORT [Suspect]
     Active Substance: BUDESONIDE\FORMOTEROL FUMARATE DIHYDRATE
     Indication: ALLERGIC GRANULOMATOUS ANGIITIS
     Dosage: 160/4.5 MCG, TWO PUFFS TWICE A DAY
     Route: 055
     Dates: start: 2012
  3. ALBUTEROL. [Concomitant]
     Active Substance: ALBUTEROL
     Indication: ALLERGIC GRANULOMATOUS ANGIITIS
     Dosage: ALBUTEROL NEBULIZED, PRN
     Route: 055
     Dates: start: 2011
  4. SYMBICORT [Suspect]
     Active Substance: BUDESONIDE\FORMOTEROL FUMARATE DIHYDRATE
     Indication: ALLERGIC GRANULOMATOUS ANGIITIS
     Dosage: UNKNOWN
     Route: 055
  5. OMEPRAZOLE. [Suspect]
     Active Substance: OMEPRAZOLE
     Indication: GASTROOESOPHAGEAL REFLUX DISEASE
     Route: 048
     Dates: start: 2011
  6. ALBUTEROL. [Concomitant]
     Active Substance: ALBUTEROL
     Indication: ALLERGIC GRANULOMATOUS ANGIITIS
     Dosage: ALBUTEROL INHALER
     Route: 055
     Dates: start: 2011
  7. SYMBICORT [Suspect]
     Active Substance: BUDESONIDE\FORMOTEROL FUMARATE DIHYDRATE
     Indication: LUNG DISORDER
     Dosage: 160/4.5 MCG, TWO PUFFS TWICE A DAY
     Route: 055
     Dates: start: 2012

REACTIONS (4)
  - Cough [Unknown]
  - Drug dose omission [Not Recovered/Not Resolved]
  - Dyspnoea [Not Recovered/Not Resolved]
  - Product use issue [Unknown]

NARRATIVE: CASE EVENT DATE: 2012
